FAERS Safety Report 12092862 (Version 1)
Quarter: 2016Q1

REPORT INFORMATION
  Report Type: Spontaneous
  Country: US (occurrence: None)
  Receive Date: 20160218
  Receipt Date: 20160218
  Transmission Date: 20160526
  Serious: Yes (Disabling)
  Sender: FDA-Public Use
  Company Number: None

PATIENT
  Age: 53 Year
  Sex: Female
  Weight: 71.22 kg

DRUGS (6)
  1. OMEPRAZOLE MAGNESIUM. [Concomitant]
     Active Substance: OMEPRAZOLE MAGNESIUM
  2. ASACOL HD [Suspect]
     Active Substance: MESALAMINE
     Indication: COLITIS MICROSCOPIC
     Route: 048
     Dates: start: 20150625, end: 20160130
  3. L-ACIDOPHILUS [Concomitant]
  4. MULTIVIT [Concomitant]
     Active Substance: VITAMINS
  5. VITAMIN C [Concomitant]
     Active Substance: ASCORBIC ACID
  6. HERBAL BLEND MENOPAUSE SUPPORT [Concomitant]

REACTIONS (3)
  - Ocular icterus [None]
  - Drug hypersensitivity [None]
  - Sleep disorder due to general medical condition, insomnia type [None]

NARRATIVE: CASE EVENT DATE: 20160126
